FAERS Safety Report 6236874-1 (Version None)
Quarter: 2009Q2

REPORT INFORMATION
  Report Type: 
  Country: None (occurrence: None)
  Receive Date: 20090619
  Receipt Date: 20090615
  Transmission Date: 20091009
  Serious: Yes (Death)
  Sender: FDA-Public Use
  Company Number: IT-ORACLE-2009S1000231

PATIENT
  Age: 76 Year
  Sex: Female

DRUGS (1)
  1. CUBICIN [Suspect]
     Indication: BACTERAEMIA
     Dates: start: 20090408, end: 20090427

REACTIONS (1)
  - DEATH [None]
